FAERS Safety Report 16346986 (Version 2)
Quarter: 2020Q1

REPORT INFORMATION
  Report Type: Spontaneous
  Country: US (occurrence: US)
  Receive Date: 20190523
  Receipt Date: 20200306
  Transmission Date: 20200409
  Serious: Yes (Other)
  Sender: FDA-Public Use
  Company Number: US-AUROBINDO-AUR-APL-2019-028148

PATIENT
  Age: 70 Year
  Sex: Male

DRUGS (15)
  1. DORZOLAMIDE;TIMOLOL [Suspect]
     Active Substance: DORZOLAMIDE\TIMOLOL
     Indication: VITRITIS
     Dosage: UNK
     Route: 065
  2. FOSCARNET [Suspect]
     Active Substance: FOSCARNET
     Dosage: 6000 MILLIGRAM, DAILY
     Route: 065
  3. VALACICLOVIR [Suspect]
     Active Substance: VALACYCLOVIR HYDROCHLORIDE
     Dosage: TAPERED BACK
     Route: 065
  4. VALGANCICLOVIR. [Suspect]
     Active Substance: VALGANCICLOVIR
     Indication: NECROTISING RETINITIS
     Dosage: DOSAGE WAS REDUCED BY HALF
     Route: 065
  5. VALACICLOVIR [Suspect]
     Active Substance: VALACYCLOVIR HYDROCHLORIDE
     Dosage: GRADUALLY INCREASED TO 2G, 3TIMES A DAY
     Route: 065
  6. FOSCARNET [Suspect]
     Active Substance: FOSCARNET
     Indication: PRODUCT USED FOR UNKNOWN INDICATION
     Dosage: 2.4 MG/0.1ML
  7. VALACICLOVIR [Suspect]
     Active Substance: VALACYCLOVIR HYDROCHLORIDE
     Indication: IRITIS
     Dosage: 1 GRAM, TWO TIMES A DAY
     Route: 048
  8. VALGANCICLOVIR. [Suspect]
     Active Substance: VALGANCICLOVIR
     Indication: VARICELLA ZOSTER VIRUS INFECTION
     Dosage: 450 MILLIGRAM, TWO TIMES A DAY
     Route: 065
  9. BRIMONIDINE [Suspect]
     Active Substance: BRIMONIDINE TARTRATE
     Indication: IRITIS
  10. DORZOLAMIDE;TIMOLOL [Suspect]
     Active Substance: DORZOLAMIDE\TIMOLOL
     Indication: IRITIS
  11. PREDNISOLONE. [Suspect]
     Active Substance: PREDNISOLONE
     Indication: IRITIS
  12. VALACICLOVIR [Suspect]
     Active Substance: VALACYCLOVIR HYDROCHLORIDE
     Indication: VITRITIS
     Dosage: 450 MILLIGRAM, TWO TIMES A DAY
     Route: 065
  13. BRIMONIDINE [Suspect]
     Active Substance: BRIMONIDINE TARTRATE
     Indication: VITRITIS
     Dosage: UNK
     Route: 065
  14. PREDNISOLONE. [Suspect]
     Active Substance: PREDNISOLONE
     Indication: VITRITIS
     Dosage: UNK
     Route: 061
  15. FOSCARNET [Suspect]
     Active Substance: FOSCARNET
     Dosage: 5400 MILLIGRAM, TWO TIMES A DAY
     Route: 042

REACTIONS (6)
  - Necrotising herpetic retinopathy [Unknown]
  - Acute kidney injury [Unknown]
  - Vasculitis [Recovered/Resolved]
  - Normochromic normocytic anaemia [Unknown]
  - Bone marrow failure [Unknown]
  - Fatigue [Not Recovered/Not Resolved]
